FAERS Safety Report 7920974 (Version 2)
Quarter: 2012Q4

REPORT INFORMATION
  Report Type: 
  Country: US (occurrence: US)
  Receive Date: 20110429
  Receipt Date: 20121004
  Transmission Date: 20130627
  Serious: No
  Sender: FDA-Public Use
  Company Number: US-ASTRAZENECA-2010SE29419

PATIENT
  Age: 79 Year
  Sex: Female

DRUGS (3)
  1. NEXIUM [Suspect]
     Route: 048
  2. NEXIUM [Suspect]
     Dosage: ONE CAPSULE
     Route: 048
  3. NEXIUM [Suspect]
     Dosage: TWO CAPSULE
     Route: 048

REACTIONS (4)
  - Gastrooesophageal reflux disease [Unknown]
  - Burning sensation [Unknown]
  - Adverse event [Unknown]
  - Intentional drug misuse [Unknown]
